FAERS Safety Report 7596694-2 (Version None)
Quarter: 2011Q3

REPORT INFORMATION
  Report Type: 
  Country: None (occurrence: None)
  Receive Date: 20110708
  Receipt Date: 20110705
  Transmission Date: 20111222
  Serious: Yes (Other)
  Sender: FDA-Public Use
  Company Number: US-TEVA-271540USA

PATIENT
  Sex: Female

DRUGS (4)
  1. ISOTRETINOIN [Suspect]
     Dosage: 20 MILLIGRAM;
  2. ORAL CONTRACEPTIVE NOS [Concomitant]
     Indication: CONTRACEPTION
     Route: 048
  3. CLARAVIS [Suspect]
     Dosage: 20 MILLIGRAM;
     Route: 048
     Dates: start: 20110214, end: 20110220
  4. CLARAVIS [Suspect]
     Dosage: 40 MILLIGRAM;
     Route: 048
     Dates: start: 20110214, end: 20110220

REACTIONS (1)
  - UNINTENDED PREGNANCY [None]
